FAERS Safety Report 5261789-5 (Version None)
Quarter: 2007Q1

REPORT INFORMATION
  Report Type: 
  Country: None (occurrence: None)
  Receive Date: 20061208
  Receipt Date: 20060413
  Transmission Date: 20070707
  Serious: Yes (Hospitalization)
  Sender: FDA-Public Use
  Company Number: USA-2006-0023999

PATIENT
  Sex: Female

DRUGS (5)
  1. OXYCONTIN [Suspect]
     Indication: BACK PAIN
     Dosage: 60 MG, TID
     Dates: start: 20040101
  2. VICODIN [Concomitant]
  3. PRINIVIL [Concomitant]
  4. PROTONIX [Concomitant]
  5. WELLBUTRIN [Concomitant]

REACTIONS (7)
  - AGITATION [None]
  - DEPRESSED MOOD [None]
  - FEELING ABNORMAL [None]
  - INADEQUATE ANALGESIA [None]
  - PAIN [None]
  - RESTLESSNESS [None]
  - TEARFULNESS [None]
